FAERS Safety Report 18956213 (Version 2)
Quarter: 2021Q3

REPORT INFORMATION
  Report Type: Spontaneous
  Country: FR (occurrence: FR)
  Receive Date: 20210301
  Receipt Date: 20210804
  Transmission Date: 20211014
  Serious: Yes (Hospitalization, Other)
  Sender: FDA-Public Use
  Company Number: FR-PFIZER INC-2021168702

PATIENT
  Age: 69 Year
  Sex: Male
  Weight: 83 kg

DRUGS (2)
  1. LIPIODOL [Suspect]
     Active Substance: ETHIODIZED OIL
     Indication: THERAPEUTIC EMBOLISATION
     Dosage: 15 ML, SINGLE
     Dates: start: 20210120, end: 20210120
  2. DOXORUBICIN HCL [Suspect]
     Active Substance: DOXORUBICIN HYDROCHLORIDE
     Indication: THERAPEUTIC EMBOLISATION
     Dosage: 50 MG, SINGLE
     Dates: start: 20210120, end: 20210120

REACTIONS (1)
  - Polychondritis [Not Recovered/Not Resolved]

NARRATIVE: CASE EVENT DATE: 202102
